FAERS Safety Report 10718651 (Version 2)
Quarter: 2015Q1

REPORT INFORMATION
  Report Type: Spontaneous
  Country: US (occurrence: US)
  Receive Date: 20150119
  Receipt Date: 20150119
  Transmission Date: 20150721
  Serious: No
  Sender: FDA-Public Use
  Company Number: US-UNITED THERAPEUTICS-UNT-2014-005115

PATIENT
  Sex: Female
  Weight: 76.19 kg

DRUGS (2)
  1. REMODULIN [Suspect]
     Active Substance: TREPROSTINIL
     Indication: PULMONARY ARTERIAL HYPERTENSION
     Dosage: 0.038 ?G/KG/MIN, CONTINUING
     Route: 041
     Dates: start: 20140724
  2. ADCIRCA [Concomitant]
     Active Substance: TADALAFIL
     Indication: PRODUCT USED FOR UNKNOWN INDICATION

REACTIONS (10)
  - Abdominal distension [Unknown]
  - Rash [Recovering/Resolving]
  - Syncope [Recovered/Resolved]
  - Migraine [Unknown]
  - Dyspnoea exertional [Unknown]
  - Decreased appetite [Unknown]
  - Dyspnoea [Recovering/Resolving]
  - Headache [Not Recovered/Not Resolved]
  - Pain in extremity [Not Recovered/Not Resolved]
  - Nausea [Unknown]

NARRATIVE: CASE EVENT DATE: 2014
